FAERS Safety Report 9769741 (Version 1)
Quarter: 2013Q4

REPORT INFORMATION
  Report Type: Spontaneous
  Country: US (occurrence: US)
  Receive Date: 20131218
  Receipt Date: 20131218
  Transmission Date: 20140711
  Serious: No
  Sender: FDA-Public Use
  Company Number: US-VERTEX PHARMACEUTICALS INC-AE-2011-000558

PATIENT
  Age: 54 Year
  Sex: Female

DRUGS (10)
  1. INCIVEK [Suspect]
     Indication: HEPATITIS C
     Route: 048
     Dates: start: 20110708
  2. COPEGUS [Concomitant]
     Indication: HEPATITIS C
     Route: 048
     Dates: start: 20110708
  3. PEGASYS [Concomitant]
     Indication: HEPATITIS C
     Route: 058
     Dates: start: 20110708
  4. LISINOPRIL [Concomitant]
     Route: 048
  5. FUROSEMIDE [Concomitant]
     Indication: FLUID RETENTION
     Route: 048
  6. POTASSIUM [Concomitant]
     Indication: ELECTROLYTE SUBSTITUTION THERAPY
     Route: 048
  7. CALCIUM, MAGNESIUM, AND VITAMIN D3 [Concomitant]
     Indication: NUTRITIONAL SUPPLEMENTATION
     Route: 048
  8. SNOOZE NASAL SPRAY [Concomitant]
     Indication: NASAL IRRIGATION
  9. VICODIN [Concomitant]
     Indication: NEURALGIA
     Route: 048
  10. TEA TREE OIL [Concomitant]
     Indication: SKIN DISORDER
     Route: 061

REACTIONS (5)
  - Vision blurred [Not Recovered/Not Resolved]
  - Rash pruritic [Not Recovered/Not Resolved]
  - Nausea [Not Recovered/Not Resolved]
  - Vomiting [Not Recovered/Not Resolved]
  - Diarrhoea [Not Recovered/Not Resolved]
